FAERS Safety Report 17656317 (Version 1)
Quarter: 2020Q2

REPORT INFORMATION
  Report Type: Spontaneous
  Country: NL (occurrence: NL)
  Receive Date: 20200410
  Receipt Date: 20200410
  Transmission Date: 20200713
  Serious: Yes (Other)
  Sender: FDA-Public Use
  Company Number: NL-TEVA-2020-NL-1221445

PATIENT
  Age: 16 Year
  Sex: Female

DRUGS (1)
  1. CIPROLOXCINE [Suspect]
     Active Substance: CIPROFLOXACIN
     Indication: PRODUCT USED FOR UNKNOWN INDICATION
     Dosage: 500 MG, 1 TABLET 2 TIMES A DAY, 500 MG 12 HOURS
     Dates: start: 20200309, end: 20200310

REACTIONS (2)
  - Swollen tongue [Not Recovered/Not Resolved]
  - Rash erythematous [Not Recovered/Not Resolved]

NARRATIVE: CASE EVENT DATE: 20200310
